FAERS Safety Report 15307995 (Version 2)
Quarter: 2018Q3

REPORT INFORMATION
  Report Type: Spontaneous
  Country: CA (occurrence: CA)
  Receive Date: 20180822
  Receipt Date: 20180827
  Transmission Date: 20181010
  Serious: Yes (Other)
  Sender: FDA-Public Use
  Company Number: CA-SHIRE-CA201831857

PATIENT

DRUGS (1)
  1. GAMMAGARD LIQUID [Suspect]
     Active Substance: HUMAN IMMUNOGLOBULIN G
     Indication: PRODUCT USED FOR UNKNOWN INDICATION
     Dosage: 20 G, UNK
     Route: 042
     Dates: start: 20180711

REACTIONS (2)
  - Hypersensitivity [Unknown]
  - Immune thrombocytopenic purpura [Unknown]

NARRATIVE: CASE EVENT DATE: 20180711
